FAERS Safety Report 12857631 (Version 1)
Quarter: 2016Q4

REPORT INFORMATION
  Report Type: Spontaneous
  Country: FR (occurrence: FR)
  Receive Date: 20161018
  Receipt Date: 20161018
  Transmission Date: 20170207
  Serious: Yes (Life-Threatening)
  Sender: FDA-Public Use
  Company Number: FR-PFIZER INC-2016481417

PATIENT
  Age: 64 Year
  Sex: Male

DRUGS (6)
  1. CLOZAPINE. [Suspect]
     Active Substance: CLOZAPINE
     Dosage: 12.5 MG, 1X/DAY
     Route: 048
     Dates: start: 20160329, end: 20160905
  2. LYRICA [Suspect]
     Active Substance: PREGABALIN
     Dosage: 2 DF, 2X/DAY
     Route: 048
     Dates: end: 20160902
  3. MIANSERINE HCL [Suspect]
     Active Substance: MIANSERIN HYDROCHLORIDE
     Dosage: UNK
     Route: 048
     Dates: start: 20160824, end: 20160905
  4. GENTAMICIN. [Concomitant]
     Active Substance: GENTAMICIN
     Dosage: UNK
  5. ROCEPHINE [Concomitant]
     Active Substance: CEFTRIAXONE SODIUM
     Dosage: UNK
  6. STALEVO [Suspect]
     Active Substance: CARBIDOPA\ENTACAPONE\LEVODOPA
     Dosage: 1 DF, 4X/DAY
     Route: 048
     Dates: start: 20160824, end: 20160905

REACTIONS (1)
  - Neuroleptic malignant syndrome [Recovered/Resolved]

NARRATIVE: CASE EVENT DATE: 20160905
